FAERS Safety Report 18511156 (Version 1)
Quarter: 2020Q4

REPORT INFORMATION
  Report Type: Spontaneous
  Country: US (occurrence: US)
  Receive Date: 20201117
  Receipt Date: 20201117
  Transmission Date: 20210114
  Serious: Yes (Life-Threatening, Hospitalization)
  Sender: FDA-Public Use
  Company Number: US-STRIDES ARCOLAB LIMITED-2020SP013838

PATIENT
  Age: 51 Year
  Sex: Male

DRUGS (4)
  1. METOPROLOL TARTRATE. [Suspect]
     Active Substance: METOPROLOL TARTRATE
     Dosage: INGESTION OF APPROXIMATELY 40 TABLETS, MIXTURE OF METOPROLOL TARTRATE 25MG AND AMLODIPINE 5MG
     Route: 048
  2. METOPROLOL TARTRATE. [Suspect]
     Active Substance: METOPROLOL TARTRATE
     Indication: PRODUCT USED FOR UNKNOWN INDICATION
     Dosage: 25 MILLIGRAM
     Route: 065
  3. AMLODIPINE [Suspect]
     Active Substance: AMLODIPINE BESYLATE
     Indication: PRODUCT USED FOR UNKNOWN INDICATION
     Dosage: 5 MILLIGRAM
     Route: 065
  4. AMLODIPINE [Suspect]
     Active Substance: AMLODIPINE BESYLATE
     Dosage: INGESTION OF APPROXIMATELY 40 TABLETS, MIXTURE OF METOPROLOL TARTRATE 25MG AND HIS AMLODIPINE 5MG
     Route: 048

REACTIONS (7)
  - Bradycardia [Recovered/Resolved]
  - Suicide attempt [Unknown]
  - Depressed level of consciousness [Recovered/Resolved]
  - Blood creatinine increased [Recovered/Resolved]
  - Intentional overdose [Unknown]
  - Vomiting [Recovered/Resolved]
  - Hypotension [Recovered/Resolved]
